FAERS Safety Report 10070635 (Version 2)
Quarter: 2014Q2

REPORT INFORMATION
  Report Type: Spontaneous
  Country: US (occurrence: US)
  Receive Date: 20140410
  Receipt Date: 20140416
  Transmission Date: 20141212
  Serious: Yes (Hospitalization)
  Sender: FDA-Public Use
  Company Number: US-B.I. PHARMACEUTICALS,INC./RIDGEFIELD-2014-BI-15147BP

PATIENT
  Age: 63 Year
  Sex: Female

DRUGS (11)
  1. SPIRIVA [Suspect]
     Indication: CHRONIC OBSTRUCTIVE PULMONARY DISEASE
     Dosage: 18 MCG
     Route: 055
     Dates: start: 2012
  2. ALBUTEROL NEBS [Concomitant]
     Route: 065
  3. LIPITOR [Concomitant]
     Route: 065
  4. SYMBICORT INHALER [Concomitant]
     Dosage: FORMULATION: INHALER
     Route: 065
  5. BUSPAR [Concomitant]
     Route: 065
  6. CALCIUM [Concomitant]
     Route: 065
  7. GABAPENTIN [Concomitant]
     Route: 065
  8. MULTIVITAMIN [Concomitant]
     Route: 065
  9. DALIRESP [Concomitant]
     Route: 065
  10. VITAMIN C [Concomitant]
     Route: 065
  11. OXYGEN [Concomitant]
     Dosage: DAILY DOSE: 2 LITERS
     Route: 065

REACTIONS (3)
  - Acute respiratory failure [Recovered/Resolved]
  - Product quality issue [Unknown]
  - Product quality issue [Unknown]
